FAERS Safety Report 22258502 (Version 1)
Quarter: 2023Q2

REPORT INFORMATION
  Report Type: Spontaneous
  Country: CO (occurrence: CO)
  Receive Date: 20230427
  Receipt Date: 20230427
  Transmission Date: 20230722
  Serious: Yes (Hospitalization, Other)
  Sender: FDA-Public Use
  Company Number: CO-SA-SAC20230425000963

PATIENT
  Sex: Male

DRUGS (1)
  1. PRALUENT [Suspect]
     Active Substance: ALIROCUMAB
     Indication: Type V hyperlipidaemia
     Dosage: 75 MG, QOW
     Route: 058
     Dates: start: 20200109

REACTIONS (2)
  - Intestinal obstruction [Unknown]
  - Abdominal pain [Unknown]
